FAERS Safety Report 21052852 (Version 1)
Quarter: 2022Q3

REPORT INFORMATION
  Report Type: Spontaneous
  Country: US (occurrence: US)
  Receive Date: 20220707
  Receipt Date: 20220707
  Transmission Date: 20221027
  Serious: Yes (Other)
  Sender: FDA-Public Use
  Company Number: US-PFIZER INC-202200925055

PATIENT

DRUGS (2)
  1. CARBOPLATIN [Suspect]
     Active Substance: CARBOPLATIN
     Indication: Non-small cell lung cancer
     Dosage: UNK
  2. PEMETREXED TROMETHAMINE [Suspect]
     Active Substance: PEMETREXED TROMETHAMINE
     Indication: Non-small cell lung cancer
     Dosage: UNK

REACTIONS (1)
  - Stress cardiomyopathy [Unknown]
